FAERS Safety Report 8404665-9 (Version None)
Quarter: 2012Q2

REPORT INFORMATION
  Report Type: 
  Country: None (occurrence: None)
  Receive Date: 20120601
  Receipt Date: 20120522
  Transmission Date: 20120825
  Serious: Yes (Other)
  Sender: FDA-Public Use
  Company Number: US-FRI-1000030710

PATIENT
  Age: 33 Year
  Sex: Female

DRUGS (1)
  1. VIIBRYD [Suspect]
     Indication: DEPRESSION
     Dosage: 5 MG
     Dates: start: 20120301, end: 20120101

REACTIONS (2)
  - AGITATION [None]
  - SUICIDAL IDEATION [None]
